FAERS Safety Report 21601060 (Version 2)
Quarter: 2022Q4

REPORT INFORMATION
  Report Type: Report from Study
  Country: US (occurrence: US)
  Receive Date: 20221116
  Receipt Date: 20221202
  Transmission Date: 20230112
  Serious: Yes (Death, Other)
  Sender: FDA-Public Use
  Company Number: US-ACADIA PHARMACEUTICALS INC.-ACA-2022-PIM-003830

PATIENT
  Age: 88 Year
  Sex: Male
  Weight: 93 kg

DRUGS (29)
  1. NUPLAZID [Suspect]
     Active Substance: PIMAVANSERIN TARTRATE
     Indication: Parkinson^s disease
     Dosage: 34 MILLIGRAM, QD
     Route: 065
     Dates: start: 20200422, end: 20221020
  2. NUPLAZID [Suspect]
     Active Substance: PIMAVANSERIN TARTRATE
     Indication: Hallucination
  3. NUPLAZID [Suspect]
     Active Substance: PIMAVANSERIN TARTRATE
     Indication: Delusion
  4. ALBUTEROL [Concomitant]
     Active Substance: ALBUTEROL
     Dosage: (0.083%) INHALATION SOLUTION: 5 MG, 6 ML, INHALE, EVERY 12 HR
  5. APIXABAN [Concomitant]
     Active Substance: APIXABAN
  6. ATORVASTATIN [Concomitant]
     Active Substance: ATORVASTATIN
     Dosage: 80 MG, 1 TAB(S), ORAL, NIGHTLY (BEDTIME)
  7. CARBIDOPA\LEVODOPA [Concomitant]
     Active Substance: CARBIDOPA\LEVODOPA
     Dosage: 25 MG-100 MG ORAL TABLET: 2.5 TAB(S), ORAL, QID, 10 TABS/DAY
  8. CIPROFLOXACIN [Concomitant]
     Active Substance: CIPROFLOXACIN
  9. COLCHICINE [Concomitant]
     Active Substance: COLCHICINE
  10. PROLIA [Concomitant]
     Active Substance: DENOSUMAB
     Dosage: INJECT 60MG SUBCUTANEOUS ONCE EVERY 6 MONTHS
     Route: 058
  11. DEPAKOTE [Concomitant]
     Active Substance: DIVALPROEX SODIUM
  12. DOCUSATE SODIUM [Concomitant]
     Active Substance: DOCUSATE SODIUM
     Indication: Constipation
     Dosage: 100 MILLIGRAM, 1 CAP(S), ORAL, NIGHTLY (BEDTIME), PRN
  13. DONEPEZIL [Concomitant]
     Active Substance: DONEPEZIL
  14. FAMOTIDINE [Concomitant]
     Active Substance: FAMOTIDINE
  15. FLUOXETINE [Concomitant]
     Active Substance: FLUOXETINE HYDROCHLORIDE
  16. FUROSEMIDE [Concomitant]
     Active Substance: FUROSEMIDE
  17. HYDROXYZINE [Concomitant]
     Active Substance: HYDROXYZINE HYDROCHLORIDE
  18. MEMANTINE [Concomitant]
     Active Substance: MEMANTINE
  19. HEPARIN [Concomitant]
     Active Substance: HEPARIN SODIUM
     Dosage: 50 UNIT(S), 5 ML, FLUSH, ONCE DAY OF TX PRN
  20. CALTRATE [Concomitant]
     Active Substance: CALCIUM CARBONATE
     Dosage: 600 MILLIGRAM, QD
     Route: 048
  21. EFFEXOR [Concomitant]
     Active Substance: VENLAFAXINE HYDROCHLORIDE
     Dosage: 75 MILLIGRAM, QD
     Route: 048
  22. ELIQUIS [Concomitant]
     Active Substance: APIXABAN
     Dosage: 2.5 MG TAB(S), BID
     Route: 048
  23. ALUMINUM HYDROXIDE\MAGNESIUM CARBONATE [Concomitant]
     Active Substance: ALUMINUM HYDROXIDE\MAGNESIUM CARBONATE
     Dosage: 20 MILLIGRAM, BID
     Route: 048
  24. QUAD MIX [ALPROSTADIL;ATROPINE SULFATE;PAPAVERINE HYDROCHLORIDE;PHENTO [Concomitant]
     Dosage: START WITH 0.2CC AND INCREASE AS DIRECTED 10 ML
  25. SODIUM CHLORIDE [Concomitant]
     Active Substance: SODIUM CHLORIDE
     Dosage: INHALE 4 CC VIA NEBULIZER TWICE DAILY
  26. VITAMIN D3 [Concomitant]
     Active Substance: CHOLECALCIFEROL
     Dosage: 6,000 INT-UNIT(S), 3 CAP(S), ORAL, DAILY
  27. DICLOFENAC [Concomitant]
     Active Substance: DICLOFENAC
     Indication: Pain
     Dosage: 1% TOPICAL GEL APP, TOP, QID, PRN
  28. MELATONIN [Concomitant]
     Active Substance: MELATONIN
     Dosage: 5 MG, 1 CAP(S), ORAL, NIGHTLY (BEDTIME)
  29. VITAMINS NOS [Concomitant]
     Active Substance: VITAMINS
     Dosage: 1 TAB(S), ORAL, DAILY

REACTIONS (3)
  - Death [Fatal]
  - General physical health deterioration [Unknown]
  - Dysphagia [Recovered/Resolved]

NARRATIVE: CASE EVENT DATE: 20221017
